FAERS Safety Report 18296823 (Version 2)
Quarter: 2021Q3

REPORT INFORMATION
  Report Type: Report from Study
  Country: RU (occurrence: RU)
  Receive Date: 20200922
  Receipt Date: 20210711
  Transmission Date: 20211014
  Serious: Yes (Other)
  Sender: FDA-Public Use
  Company Number: NVSC2020RU256461

PATIENT
  Age: 56 Year
  Sex: Female

DRUGS (2)
  1. RIBOCICLIB. [Suspect]
     Active Substance: RIBOCICLIB
     Indication: PRODUCT USED FOR UNKNOWN INDICATION
     Dosage: UNK
     Route: 065
  2. LETROZOLE. [Concomitant]
     Active Substance: LETROZOLE
     Indication: PRODUCT USED FOR UNKNOWN INDICATION
     Dosage: UNK
     Route: 065

REACTIONS (6)
  - Malignant neoplasm progression [Unknown]
  - Leukopenia [Unknown]
  - Nephropathy [Unknown]
  - Asthenia [Unknown]
  - Pain [Unknown]
  - Metastases to bone [Unknown]

NARRATIVE: CASE EVENT DATE: 202004
